FAERS Safety Report 19448175 (Version 1)
Quarter: 2021Q2

REPORT INFORMATION
  Report Type: Spontaneous
  Country: GB (occurrence: GB)
  Receive Date: 20210622
  Receipt Date: 20210622
  Transmission Date: 20210717
  Serious: Yes (Other)
  Sender: FDA-Public Use
  Company Number: NVSC2021GB132241

PATIENT
  Age: 51 Year
  Sex: Female
  Weight: 69 kg

DRUGS (2)
  1. CETIRIZINE HYDROCHLORIDE. [Concomitant]
     Active Substance: CETIRIZINE HYDROCHLORIDE
     Indication: PRODUCT USED FOR UNKNOWN INDICATION
     Dosage: UNK
     Route: 065
  2. CLARITHROMYCIN. [Suspect]
     Active Substance: CLARITHROMYCIN
     Indication: PHARYNGITIS
     Dosage: 500 MG
     Route: 048
     Dates: start: 20210520, end: 20210521

REACTIONS (3)
  - Swollen tongue [Recovered/Resolved]
  - Product use complaint [Unknown]
  - Dizziness [Unknown]

NARRATIVE: CASE EVENT DATE: 20210520
